FAERS Safety Report 6522291-3 (Version None)
Quarter: 2009Q4

REPORT INFORMATION
  Report Type: 
  Country: None (occurrence: None)
  Receive Date: 20091229
  Receipt Date: 20091229
  Transmission Date: 20100525
  Serious: Yes (Life-Threatening)
  Sender: FDA-Public Use
  Company Number: None

PATIENT
  Age: 72 Year
  Sex: Female
  Weight: 68 kg

DRUGS (5)
  1. LORAZEPAM [Suspect]
     Indication: ANXIETY
     Dosage: 0.5MG IV X 1  (11/3 @0940)
     Route: 042
  2. MORPHINE [Suspect]
     Indication: PROCEDURAL PAIN
     Dosage: PCA 0/2/10  (11/2 @1547 - 11/3 @9A)
  3. HEPARIN [Concomitant]
  4. PREMARIN [Concomitant]
  5. METOPROLOL TARTRATE [Concomitant]

REACTIONS (4)
  - ANXIETY [None]
  - LETHARGY [None]
  - SOMNOLENCE [None]
  - UNRESPONSIVE TO STIMULI [None]
